FAERS Safety Report 11241221 (Version 1)
Quarter: 2015Q3

REPORT INFORMATION
  Report Type: Spontaneous
  Country: IT (occurrence: IT)
  Receive Date: 20150706
  Receipt Date: 20150706
  Transmission Date: 20151125
  Serious: Yes (Other)
  Sender: FDA-Public Use
  Company Number: IT-PFIZER INC-2015220192

PATIENT
  Age: 3 Year
  Sex: Female
  Weight: 14 kg

DRUGS (1)
  1. ZITHROMAX [Suspect]
     Active Substance: AZITHROMYCIN DIHYDRATE
     Indication: TONSILLITIS
     Dosage: 150 MG, TOTAL
     Route: 048
     Dates: start: 20150210, end: 20150210

REACTIONS (3)
  - Somnolence [Unknown]
  - Trismus [Unknown]
  - Partial seizures [Unknown]

NARRATIVE: CASE EVENT DATE: 20150210
